FAERS Safety Report 14638097 (Version 1)
Quarter: 2018Q1

REPORT INFORMATION
  Report Type: Spontaneous
  Country: US (occurrence: US)
  Receive Date: 20180314
  Receipt Date: 20180314
  Transmission Date: 20180509
  Serious: Yes (Disabling)
  Sender: FDA-Public Use
  Company Number: None

PATIENT
  Age: 10 Year
  Sex: Male
  Weight: 31.5 kg

DRUGS (5)
  1. STRATTERA [Concomitant]
     Active Substance: ATOMOXETINE HYDROCHLORIDE
  2. GUANFACINE. [Concomitant]
     Active Substance: GUANFACINE
  3. LAMICTAL [Concomitant]
     Active Substance: LAMOTRIGINE
  4. MELATONIN [Concomitant]
     Active Substance: MELATONIN
  5. METHYLPHENIDATE. [Suspect]
     Active Substance: METHYLPHENIDATE
     Indication: ATTENTION DEFICIT/HYPERACTIVITY DISORDER
     Dosage: ?          QUANTITY:1 TABLET(S);?
     Route: 048
     Dates: start: 20171201, end: 20180131

REACTIONS (6)
  - Abnormal behaviour [None]
  - Product substitution issue [None]
  - Insurance issue [None]
  - Inability to afford medication [None]
  - Aggression [None]
  - Product formulation issue [None]

NARRATIVE: CASE EVENT DATE: 20180101
